FAERS Safety Report 13212307 (Version 1)
Quarter: 2017Q1

REPORT INFORMATION
  Report Type: Report from Study
  Country: CA (occurrence: CA)
  Receive Date: 20170210
  Receipt Date: 20170210
  Transmission Date: 20170428
  Serious: Yes (Death)
  Sender: FDA-Public Use
  Company Number: CA-ASTRAZENECA-2017SE15159

PATIENT

DRUGS (6)
  1. ROSUVASTATIN. [Suspect]
     Active Substance: ROSUVASTATIN
     Indication: NEOPLASM
     Dosage: 1 MG/KG/DAY 3 WEEKS THEN 1 WEEK OFF (28-DAY CYCLE)
     Route: 048
  2. ROSUVASTATIN. [Suspect]
     Active Substance: ROSUVASTATIN
     Indication: NEOPLASM
     Dosage: 2 MG/KG/DAY 3 WEEKS THEN 1 WEEK OFF (28-DAY CYCLE)
     Route: 048
  3. ERLOTINIB [Suspect]
     Active Substance: ERLOTINIB
     Indication: NEOPLASM
     Route: 048
  4. ROSUVASTATIN. [Suspect]
     Active Substance: ROSUVASTATIN
     Indication: NON-SMALL CELL LUNG CANCER
     Dosage: 1 MG/KG/DAY 3 WEEKS THEN 1 WEEK OFF (28-DAY CYCLE)
     Route: 048
  5. ERLOTINIB [Suspect]
     Active Substance: ERLOTINIB
     Indication: NON-SMALL CELL LUNG CANCER
     Route: 048
  6. ROSUVASTATIN. [Suspect]
     Active Substance: ROSUVASTATIN
     Indication: NON-SMALL CELL LUNG CANCER
     Dosage: 2 MG/KG/DAY 3 WEEKS THEN 1 WEEK OFF (28-DAY CYCLE)
     Route: 048

REACTIONS (1)
  - Rhabdomyolysis [Fatal]
